FAERS Safety Report 10176976 (Version 1)
Quarter: 2014Q2

REPORT INFORMATION
  Report Type: Spontaneous
  Country: IT (occurrence: IT)
  Receive Date: 20140516
  Receipt Date: 20140516
  Transmission Date: 20141212
  Serious: Yes (Other)
  Sender: FDA-Public Use
  Company Number: IT-ELI_LILLY_AND_COMPANY-IT201405001107

PATIENT
  Age: 74 Year
  Sex: Male

DRUGS (8)
  1. HUMALOG LISPRO [Suspect]
     Indication: TYPE 2 DIABETES MELLITUS
     Dosage: 36 IU, UNK
     Route: 058
     Dates: start: 20130101, end: 20130504
  2. LANTUS [Suspect]
     Indication: TYPE 2 DIABETES MELLITUS
     Dosage: 17 IU, QD
     Route: 058
     Dates: start: 20130101, end: 20130504
  3. RAMIPRIL [Concomitant]
     Dosage: 2.5 MG, UNK
     Route: 048
  4. CARVEDILOL [Concomitant]
     Dosage: 6.25 MG, UNK
     Route: 048
  5. FUROSEMIDE [Concomitant]
     Route: 048
  6. SIVASTIN [Concomitant]
     Route: 048
  7. NITRODERM [Concomitant]
     Route: 062
  8. CLEXANE [Concomitant]
     Dosage: 4000 IU, UNK
     Route: 058

REACTIONS (2)
  - Head injury [Recovering/Resolving]
  - Hypoglycaemic unconsciousness [Recovering/Resolving]
